FAERS Safety Report 19814398 (Version 1)
Quarter: 2021Q3

REPORT INFORMATION
  Report Type: Report from Study
  Country: DK (occurrence: DK)
  Receive Date: 20210909
  Receipt Date: 20210909
  Transmission Date: 20211014
  Serious: Yes (Life-Threatening, Hospitalization)
  Sender: FDA-Public Use
  Company Number: DK-TEVA-2021-DK-1950002

PATIENT
  Age: 9 Year
  Sex: Male

DRUGS (6)
  1. METOPROLOL. [Suspect]
     Active Substance: METOPROLOL
     Indication: VENTRICULAR ARRHYTHMIA
     Route: 065
  2. MAGNESIUM SULPHATE [Suspect]
     Active Substance: MAGNESIUM SULFATE
     Indication: VENTRICULAR ARRHYTHMIA
     Route: 065
  3. LIDOCAINE. [Suspect]
     Active Substance: LIDOCAINE
     Indication: VENTRICULAR ARRHYTHMIA
     Route: 065
  4. METOPROLOL. [Suspect]
     Active Substance: METOPROLOL
     Indication: VENTRICULAR FIBRILLATION
  5. NADOLOL. [Suspect]
     Active Substance: NADOLOL
     Indication: VENTRICULAR ARRHYTHMIA
     Route: 065
  6. METOPROLOL. [Suspect]
     Active Substance: METOPROLOL
     Indication: VENTRICULAR TACHYCARDIA

REACTIONS (1)
  - Drug ineffective [Unknown]
